FAERS Safety Report 6805725-6 (Version None)
Quarter: 2010Q2

REPORT INFORMATION
  Report Type: 
  Country: None (occurrence: None)
  Receive Date: 20100628
  Receipt Date: 20080613
  Transmission Date: 20101027
  Serious: Yes (Other)
  Sender: FDA-Public Use
  Company Number: US-PFIZER INC-2008050201

PATIENT
  Age: 86 Year
  Sex: Female
  Weight: 40.909 kg

DRUGS (2)
  1. SUTENT [Suspect]
     Indication: RENAL CANCER
     Dates: start: 20050527, end: 20070531
  2. RYNATUSS [Suspect]
     Dates: start: 20070530, end: 20070531

REACTIONS (5)
  - ANXIETY [None]
  - DECREASED APPETITE [None]
  - DYSPNOEA [None]
  - HAEMATOCHEZIA [None]
  - JOINT SWELLING [None]
